FAERS Safety Report 16132886 (Version 4)
Quarter: 2021Q2

REPORT INFORMATION
  Report Type: Spontaneous
  Country: US (occurrence: US)
  Receive Date: 20190329
  Receipt Date: 20210401
  Transmission Date: 20210716
  Serious: No
  Sender: FDA-Public Use
  Company Number: US-SA-2019SA080915

PATIENT
  Sex: Male

DRUGS (1)
  1. DUPIXENT [Suspect]
     Active Substance: DUPILUMAB
     Indication: DERMATITIS
     Dosage: 300 MG, QOW
     Route: 058

REACTIONS (12)
  - Dry mouth [Unknown]
  - Pyrexia [Unknown]
  - Dermatitis atopic [Unknown]
  - Skin burning sensation [Unknown]
  - Pruritus [Unknown]
  - Dry eye [Unknown]
  - Product use in unapproved indication [Unknown]
  - Eye swelling [Unknown]
  - Rash [Unknown]
  - Eye pruritus [Unknown]
  - Polyp [Recovered/Resolved]
  - Feeling abnormal [Unknown]
